FAERS Safety Report 4960459-8 (Version None)
Quarter: 2006Q2

REPORT INFORMATION
  Report Type: 
  Country: None (occurrence: None)
  Receive Date: 20060403
  Receipt Date: 20060202
  Transmission Date: 20061013
  Serious: Yes (Other)
  Sender: FDA-Public Use
  Company Number: SE-GLAXOSMITHKLINE-B0411447A

PATIENT
  Sex: Male

DRUGS (6)
  1. AVANDIA [Suspect]
     Indication: DRUG USE FOR UNKNOWN INDICATION
     Route: 065
  2. SIMVASTATIN [Concomitant]
  3. ATENOLOL [Concomitant]
  4. TROMBYL [Concomitant]
  5. FURIX [Concomitant]
  6. PSYCHOTROPIC DRUGS [Concomitant]

REACTIONS (4)
  - ADVERSE EVENT [None]
  - CARDIAC FAILURE [None]
  - HYPOAESTHESIA [None]
  - OEDEMA [None]
